FAERS Safety Report 16043178 (Version 2)
Quarter: 2019Q2

REPORT INFORMATION
  Report Type: Spontaneous
  Country: FR (occurrence: FR)
  Receive Date: 20190306
  Receipt Date: 20190402
  Transmission Date: 20190711
  Serious: Yes (Life-Threatening, Hospitalization, Other)
  Sender: FDA-Public Use
  Company Number: FR-MYLANLABS-2019M1021118

PATIENT
  Sex: Male
  Weight: 2.66 kg

DRUGS (1)
  1. BUPIVACAINE MYLAN [Suspect]
     Active Substance: BUPIVACAINE
     Indication: ANAESTHESIA
     Dosage: UNK
     Dates: start: 20190301, end: 20190301

REACTIONS (6)
  - Foetal exposure during pregnancy [Recovered/Resolved]
  - Foetal acidosis [Recovered/Resolved]
  - Neonatal respiratory failure [Recovered/Resolved]
  - Hypoperfusion [Recovered/Resolved]
  - Altered state of consciousness [Recovered/Resolved]
  - Hypotonia neonatal [Recovered/Resolved]

NARRATIVE: CASE EVENT DATE: 20190301
